FAERS Safety Report 6260111-5 (Version None)
Quarter: 2009Q3

REPORT INFORMATION
  Report Type: 
  Country: None (occurrence: None)
  Receive Date: 20090708
  Receipt Date: 20090629
  Transmission Date: 20100115
  Serious: Yes (Hospitalization, Other)
  Sender: FDA-Public Use
  Company Number: US-ELI_LILLY_AND_COMPANY-US200905002111

PATIENT
  Sex: Male

DRUGS (15)
  1. BYETTA [Suspect]
     Dosage: UNK, UNKNOWN
     Dates: start: 20070301, end: 20070501
  2. INSULIN [Concomitant]
     Dosage: UNK, UNKNOWN
  3. GLUCOTROL [Concomitant]
     Dosage: UNK, UNKNOWN
  4. LIPITOR [Concomitant]
     Dosage: UNK, UNKNOWN
  5. ENALAPRIL [Concomitant]
     Dosage: UNK, UNKNOWN
  6. FUROSEMIDE [Concomitant]
     Dosage: UNK, UNKNOWN
  7. SINEQUAN [Concomitant]
     Dosage: UNK, UNKNOWN
  8. ALLOPURINOL [Concomitant]
     Dosage: UNK, UNKNOWN
  9. ALBUTEROL [Concomitant]
     Dosage: UNK, UNKNOWN
  10. IRON [Concomitant]
     Dosage: UNK, UNKNOWN
  11. QVAR 40 [Concomitant]
     Dosage: UNK, UNKNOWN
  12. OMEPRAZOLE [Concomitant]
     Dosage: UNK, UNKNOWN
  13. LANTUS [Concomitant]
     Dosage: UNK, UNKNOWN
  14. AVANDIA [Concomitant]
     Dosage: UNK, UNKNOWN
  15. HYDROCODONE BITARTRATE [Concomitant]
     Dosage: UNK, UNKNOWN

REACTIONS (6)
  - ANAEMIA [None]
  - BLOOD GLUCOSE DECREASED [None]
  - BLOOD POTASSIUM INCREASED [None]
  - OFF LABEL USE [None]
  - RENAL FAILURE [None]
  - VOMITING [None]
